FAERS Safety Report 24939016 (Version 3)
Quarter: 2025Q2

REPORT INFORMATION
  Report Type: Spontaneous
  Country: US (occurrence: US)
  Receive Date: 20250206
  Receipt Date: 20250408
  Transmission Date: 20250716
  Serious: Yes (Other)
  Sender: PFIZER
  Company Number: US-PFIZER INC-202400315604

PATIENT
  Age: 87 Year
  Sex: Female

DRUGS (6)
  1. IBRANCE [Suspect]
     Active Substance: PALBOCICLIB
     Indication: Breast cancer female
     Route: 048
     Dates: start: 20241118
  2. IBRANCE [Suspect]
     Active Substance: PALBOCICLIB
     Dates: end: 20250113
  3. IBRANCE [Suspect]
     Active Substance: PALBOCICLIB
     Route: 048
  4. IBRANCE [Suspect]
     Active Substance: PALBOCICLIB
     Route: 048
  5. FULVESTRANT [Concomitant]
     Active Substance: FULVESTRANT
     Dates: start: 20241118
  6. XGEVA [Concomitant]
     Active Substance: DENOSUMAB
     Dates: start: 20250113

REACTIONS (2)
  - Neutropenia [Unknown]
  - Anaemia [Unknown]
